FAERS Safety Report 19521516 (Version 2)
Quarter: 2021Q3

REPORT INFORMATION
  Report Type: Spontaneous
  Country: DE (occurrence: DE)
  Receive Date: 20210712
  Receipt Date: 20210715
  Transmission Date: 20211014
  Serious: Yes (Other)
  Sender: FDA-Public Use
  Company Number: DE-ASTRAZENECA-2021A602425

PATIENT
  Sex: Female

DRUGS (1)
  1. BRIMICA GENUAIR [Suspect]
     Active Substance: ACLIDINIUM BROMIDE\FORMOTEROL FUMARATE
     Dosage: UNKNOWN DOSE
     Route: 055

REACTIONS (7)
  - Fear [Unknown]
  - Intentional dose omission [Unknown]
  - Tachycardia [Unknown]
  - Quality of life decreased [Not Recovered/Not Resolved]
  - Chest discomfort [Unknown]
  - Seizure [Unknown]
  - Dyspnoea exertional [Unknown]

NARRATIVE: CASE EVENT DATE: 20210630
